FAERS Safety Report 7650533-X (Version None)
Quarter: 2011Q3

REPORT INFORMATION
  Report Type: 
  Country: None (occurrence: None)
  Receive Date: 20110802
  Receipt Date: 20110725
  Transmission Date: 20111222
  Serious: Yes (Other)
  Sender: FDA-Public Use
  Company Number: JP-GLAXOSMITHKLINE-B0735810A

PATIENT
  Age: 77 Year
  Sex: Female
  Weight: 30 kg

DRUGS (5)
  1. ADALAT [Concomitant]
     Route: 048
  2. PRAVASTATIN SODIUM [Concomitant]
     Route: 048
  3. VALTREX [Suspect]
     Indication: HERPES ZOSTER
     Dosage: 6IUAX PER DAY
     Route: 048
     Dates: start: 20110720, end: 20110723
  4. LOXONIN [Concomitant]
     Route: 065
     Dates: start: 20110720
  5. SELBEX [Concomitant]
     Dosage: 2IUAX PER DAY
     Route: 048
     Dates: start: 20110720, end: 20110723

REACTIONS (2)
  - PLATELET COUNT DECREASED [None]
  - PURPURA [None]
